FAERS Safety Report 6238365-0 (Version None)
Quarter: 2009Q2

REPORT INFORMATION
  Report Type: 
  Country: None (occurrence: None)
  Receive Date: 20090622
  Receipt Date: 20090609
  Transmission Date: 20091009
  Serious: Yes (Other)
  Sender: FDA-Public Use
  Company Number: US-BIOGENIDEC-2007BI012190

PATIENT
  Age: 31 Year
  Sex: Female
  Weight: 54 kg

DRUGS (7)
  1. AVONEX [Suspect]
     Indication: MULTIPLE SCLEROSIS
     Route: 030
     Dates: start: 19971001, end: 20000101
  2. AVONEX [Suspect]
     Route: 030
     Dates: start: 20070401
  3. OXYCONTIN [Concomitant]
     Indication: PAIN
     Route: 048
  4. VALIUM [Concomitant]
     Indication: MUSCLE SPASMS
     Route: 048
  5. BACLOFEN [Concomitant]
     Indication: MUSCLE SPASMS
     Route: 048
  6. LEXAPRO [Concomitant]
     Indication: DEPRESSION
     Route: 048
  7. STEROID PACK [Concomitant]
     Indication: MULTIPLE SCLEROSIS RELAPSE

REACTIONS (3)
  - CONVERSION DISORDER [None]
  - CONVULSION [None]
  - INFLUENZA LIKE ILLNESS [None]
